FAERS Safety Report 12411988 (Version 1)
Quarter: 2016Q2

REPORT INFORMATION
  Report Type: Spontaneous
  Country: US (occurrence: None)
  Receive Date: 20160526
  Receipt Date: 20160526
  Transmission Date: 20160815
  Serious: No
  Sender: FDA-Public Use
  Company Number: None

PATIENT
  Age: 49 Year
  Sex: Female

DRUGS (6)
  1. SOMAVERT [Suspect]
     Active Substance: PEGVISOMANT
     Indication: GIGANTISM
     Dosage: 15MG QAM SQ
     Route: 058
     Dates: start: 201602, end: 201604
  2. SANDOSTATIN DEPOT (OCTREOTIDE WITH POLY (D-L-LACTIDE-CO-GLYCOLIDE) UNKNOWN [Suspect]
     Active Substance: OCTREOTIDE ACETATE
     Indication: ACROMEGALY
     Dosage: 40 MG Q 4 WEEKS IM
     Route: 030
     Dates: start: 200906, end: 201604
  3. SANDOSTATIN DEPOT (OCTREOTIDE WITH POLY (D-L-LACTIDE-CO-GLYCOLIDE) UNKNOWN [Suspect]
     Active Substance: OCTREOTIDE ACETATE
     Indication: GIGANTISM
     Dosage: 40 MG Q 4 WEEKS IM
     Route: 030
     Dates: start: 200906, end: 201604
  4. SOMAVERT [Suspect]
     Active Substance: PEGVISOMANT
     Indication: ERYTHROMELALGIA
     Dosage: 15MG QAM SQ
     Route: 058
     Dates: start: 201602, end: 201604
  5. SOMAVERT [Suspect]
     Active Substance: PEGVISOMANT
     Indication: PITUITARY TUMOUR BENIGN
     Dosage: 15MG QAM SQ
     Route: 058
     Dates: start: 201602, end: 201604
  6. SANDOSTATIN DEPOT (OCTREOTIDE WITH POLY (D-L-LACTIDE-CO-GLYCOLIDE) UNKNOWN [Suspect]
     Active Substance: OCTREOTIDE ACETATE
     Indication: PITUITARY TUMOUR BENIGN
     Dosage: 40 MG Q 4 WEEKS IM
     Route: 030
     Dates: start: 200906, end: 201604

REACTIONS (1)
  - Drug ineffective [None]

NARRATIVE: CASE EVENT DATE: 201604
